FAERS Safety Report 5797047-X (Version None)
Quarter: 2008Q2

REPORT INFORMATION
  Report Type: 
  Country: None (occurrence: None)
  Receive Date: 20080618
  Receipt Date: 20070920
  Transmission Date: 20081010
  Serious: Yes (Hospitalization)
  Sender: FDA-Public Use
  Company Number: 200716692US

PATIENT

DRUGS (1)
  1. LANTUS [Suspect]

REACTIONS (1)
  - HYPOGLYCAEMIA [None]
